FAERS Safety Report 4300433-8 (Version None)
Quarter: 2004Q1

REPORT INFORMATION
  Report Type: 
  Country: None (occurrence: None)
  Receive Date: 20040218
  Receipt Date: 20040205
  Transmission Date: 20041129
  Serious: Yes (Hospitalization, Other)
  Sender: FDA-Public Use
  Company Number: FRWYE562006FEB04

PATIENT
  Age: 48 Year
  Sex: Male

DRUGS (6)
  1. RAPAMUNE [Suspect]
     Indication: PROPHYLAXIS AGAINST TRANSPLANT REJECTION
     Dosage: SEE IMAGE
     Route: 048
     Dates: start: 20030802, end: 20030803
  2. RAPAMUNE [Suspect]
     Indication: PROPHYLAXIS AGAINST TRANSPLANT REJECTION
     Dosage: SEE IMAGE
     Route: 048
     Dates: start: 20030804, end: 20030903
  3. RAPAMUNE [Suspect]
     Indication: PROPHYLAXIS AGAINST TRANSPLANT REJECTION
     Dosage: SEE IMAGE
     Route: 048
     Dates: start: 20030904
  4. CELLCEPT [Suspect]
     Indication: PROPHYLAXIS AGAINST TRANSPLANT REJECTION
     Dosage: 2 G 1X PER 1 DAY
     Route: 048
     Dates: start: 20030731
  5. ANTITHYMOCYTE IMMUNOGLOBULIN (ANTITHYMOCYTE IMMUNOGLOBULIN) [Concomitant]
  6. SOLU-MEDROL [Concomitant]

REACTIONS (9)
  - ANAEMIA [None]
  - BIOPSY KIDNEY ABNORMAL [None]
  - BLOOD SODIUM INCREASED [None]
  - FLUID OVERLOAD [None]
  - GRAFT DYSFUNCTION [None]
  - HAEMODIALYSIS [None]
  - PLEURAL EFFUSION [None]
  - RENAL ARTERIOSCLEROSIS [None]
  - RENAL TUBULAR NECROSIS [None]
